FAERS Safety Report 20993147 (Version 2)
Quarter: 2022Q2

REPORT INFORMATION
  Report Type: Report from Study
  Country: US (occurrence: US)
  Receive Date: 20220622
  Receipt Date: 20220627
  Transmission Date: 20220721
  Serious: Yes (Hospitalization, Other)
  Sender: FDA-Public Use
  Company Number: US-PFIZER INC-PV202200000465

PATIENT
  Age: 59 Year
  Sex: Female

DRUGS (18)
  1. CARBOPLATIN [Suspect]
     Active Substance: CARBOPLATIN
     Dosage: 447 MG
     Route: 042
     Dates: start: 20220428
  2. GEMCITABINE HYDROCHLORIDE [Suspect]
     Active Substance: GEMCITABINE HYDROCHLORIDE
     Dosage: 1940 MG
     Route: 042
     Dates: start: 20220428
  3. BEVACIZUMAB [Suspect]
     Active Substance: BEVACIZUMAB
     Dosage: 1266 MG
     Route: 042
     Dates: start: 20220428
  4. TRK-950 [Suspect]
     Active Substance: TRK-950
     Dosage: 422 MG
     Route: 042
     Dates: start: 20220428
  5. PALONOSETRON [Concomitant]
     Active Substance: PALONOSETRON
     Indication: Prophylaxis
     Dosage: 0.25 MG, EVERY 3 WEEKS
     Route: 042
     Dates: start: 20220428
  6. APREPITANT [Concomitant]
     Active Substance: APREPITANT
     Indication: Prophylaxis
     Dosage: 130 MG, EVERY 3 WEEKS
     Route: 042
     Dates: start: 20220428
  7. OXYCODONE [Concomitant]
     Active Substance: OXYCODONE
     Indication: Vulvovaginal pain
     Dosage: 5 MG, AS NEEDED
     Route: 048
     Dates: start: 20220418
  8. FENTANYL [Concomitant]
     Active Substance: FENTANYL
     Indication: Vulvovaginal pain
     Dosage: 25 MCG/HR EVERY 72 HOURS
     Route: 062
     Dates: start: 20220428
  9. ZOFRAN [Concomitant]
     Active Substance: ONDANSETRON HYDROCHLORIDE
     Indication: Prophylaxis of nausea and vomiting
     Dosage: 8 MG, AS NEEDED
     Route: 048
     Dates: start: 20220405
  10. ATIVAN [Concomitant]
     Active Substance: LORAZEPAM
     Indication: Prophylaxis of nausea and vomiting
     Dosage: 0.5 MG, AS NEEDED
     Route: 048
     Dates: start: 20220405
  11. BENADRYL [Concomitant]
     Active Substance: DIPHENHYDRAMINE HYDROCHLORIDE
     Indication: Prophylaxis
     Dosage: 50 MG, AS NEEDED
     Route: 048
     Dates: start: 20220405
  12. GABAPENTIN [Concomitant]
     Active Substance: GABAPENTIN
     Indication: Vulvovaginal pain
     Dosage: 200 MG, TWICE DAILY
     Route: 048
     Dates: start: 20220404
  13. XANAX [Concomitant]
     Active Substance: ALPRAZOLAM
     Indication: Anxiety
     Dosage: 0.25 MG, AS NEEDED
     Route: 048
     Dates: start: 20191008
  14. IBUPROFEN [Concomitant]
     Active Substance: IBUPROFEN
     Indication: Vulvovaginal pain
     Dosage: 200 MG, AS NEEDED
     Route: 048
     Dates: start: 20220325
  15. MIRALAX [Concomitant]
     Active Substance: POLYETHYLENE GLYCOL 3350
     Indication: Constipation prophylaxis
     Dosage: 1 PACKET, AS NEEDED
     Route: 048
     Dates: start: 20210226
  16. COLACE [Concomitant]
     Active Substance: DOCUSATE SODIUM
     Indication: Constipation prophylaxis
     Dosage: 100 MG, AS NEEDED
     Route: 048
     Dates: start: 20191014
  17. SENOKOT [Concomitant]
     Active Substance: SENNOSIDES
     Indication: Constipation prophylaxis
     Dosage: 8.6 MG, AS NEEDED
     Route: 048
     Dates: start: 20191009
  18. DEXAMETHASONE [Concomitant]
     Active Substance: DEXAMETHASONE
     Indication: Prophylaxis
     Dosage: 0.9% NORMAL SALINE 12 MG, EVERY 3 WEEKS
     Route: 042
     Dates: start: 20220428

REACTIONS (1)
  - Vulvovaginal pain [Recovered/Resolved with Sequelae]
